FAERS Safety Report 6635877-2 (Version None)
Quarter: 2010Q1

REPORT INFORMATION
  Report Type: 
  Country: None (occurrence: None)
  Receive Date: 20100316
  Receipt Date: 20100310
  Transmission Date: 20100710
  Serious: Yes (Hospitalization, Disabling)
  Sender: FDA-Public Use
  Company Number: GB-TEVA-227168ISR

PATIENT
  Age: 68 Year
  Sex: Female
  Weight: 95 kg

DRUGS (1)
  1. DOXAZOSIN [Suspect]
     Indication: HYPERTENSION
     Route: 048
     Dates: start: 20091211, end: 20100219

REACTIONS (2)
  - ANAEMIA [None]
  - THROMBOCYTOPENIA [None]
